FAERS Safety Report 6434937-9 (Version None)
Quarter: 2009Q4

REPORT INFORMATION
  Report Type: 
  Country: None (occurrence: None)
  Receive Date: 20091109
  Receipt Date: 20091109
  Transmission Date: 20100525
  Serious: Yes (Other)
  Sender: FDA-Public Use
  Company Number: None

PATIENT
  Age: 35 Year
  Sex: Female
  Weight: 132.9039 kg

DRUGS (2)
  1. NIASPAN [Suspect]
     Indication: BLOOD TRIGLYCERIDES INCREASED
     Dosage: 500 MG 1 A DAY @ BEDTIME PO
     Route: 048
     Dates: start: 20091103, end: 20091111
  2. NIASPAN [Suspect]
     Indication: LOW DENSITY LIPOPROTEIN INCREASED
     Dosage: 500 MG 1 A DAY @ BEDTIME PO
     Route: 048
     Dates: start: 20091103, end: 20091111

REACTIONS (1)
  - RED MAN SYNDROME [None]
